FAERS Safety Report 4871673-4 (Version None)
Quarter: 2006Q1

REPORT INFORMATION
  Report Type: 
  Country: None (occurrence: None)
  Receive Date: 20060104
  Receipt Date: 20051201
  Transmission Date: 20060701
  Serious: Yes (Hospitalization)
  Sender: FDA-Public Use
  Company Number: PHBS2005JP17962

PATIENT
  Age: 24 Year
  Sex: Male
  Weight: 50 kg

DRUGS (2)
  1. NEORAL [Suspect]
     Indication: NEPHROTIC SYNDROME
     Dosage: 150 MG/D
     Route: 048
     Dates: start: 20051122, end: 20051201
  2. NEORAL [Suspect]
     Dosage: 100 MG/D
     Route: 048
     Dates: start: 20051202

REACTIONS (2)
  - DRUG LEVEL INCREASED [None]
  - VISUAL ACUITY REDUCED [None]
